FAERS Safety Report 9413321 (Version 2)
Quarter: 2013Q3

REPORT INFORMATION
  Report Type: Report from Study
  Country: CZ (occurrence: CZ)
  Receive Date: 20130722
  Receipt Date: 20130822
  Transmission Date: 20140515
  Serious: Yes (Life-Threatening, Hospitalization, Other)
  Sender: FDA-Public Use
  Company Number: CZ-ABBOTT-13P-217-1119640-00

PATIENT
  Age: 38 Year
  Sex: Male
  Weight: 101 kg

DRUGS (9)
  1. HUMIRA [Suspect]
     Indication: RHEUMATOID ARTHRITIS
     Route: 058
     Dates: start: 20090203, end: 20130630
  2. HUMIRA [Suspect]
     Dates: start: 20130712
  3. EQUORAL [Concomitant]
     Indication: PRODUCT USED FOR UNKNOWN INDICATION
  4. MEDROL [Concomitant]
     Indication: PRODUCT USED FOR UNKNOWN INDICATION
     Dosage: EVERY SECOND DAY
  5. TELMISARTAN [Concomitant]
     Indication: PRODUCT USED FOR UNKNOWN INDICATION
  6. VITANTOL (CHOLEKALCIFEROL) [Concomitant]
     Indication: PRODUCT USED FOR UNKNOWN INDICATION
  7. LEFLUNOMIDE [Concomitant]
     Indication: PRODUCT USED FOR UNKNOWN INDICATION
     Dates: start: 20020718
  8. SANDIMUN [Concomitant]
     Indication: PRODUCT USED FOR UNKNOWN INDICATION
     Dates: start: 20031029
  9. TREXAN [Concomitant]
     Indication: PRODUCT USED FOR UNKNOWN INDICATION
     Dosage: 5-10MG DAILY
     Dates: start: 20120125

REACTIONS (5)
  - Nephrolithiasis [Unknown]
  - Renal colic [Recovered/Resolved]
  - Hydronephrosis [Recovered/Resolved]
  - Calculus ureteric [Unknown]
  - Hydronephrosis [Unknown]
